FAERS Safety Report 8350585-8 (Version None)
Quarter: 2012Q2

REPORT INFORMATION
  Report Type: 
  Country: None (occurrence: None)
  Receive Date: 20120510
  Receipt Date: 20120502
  Transmission Date: 20120825
  Serious: Yes (Other)
  Sender: FDA-Public Use
  Company Number: US-BAYER-2012-027782

PATIENT
  Sex: Female

DRUGS (1)
  1. CLIMARA PRO [Suspect]
     Indication: HOT FLUSH
     Dosage: UNK
     Route: 062
     Dates: start: 20110101

REACTIONS (9)
  - MENOPAUSAL SYMPTOMS [None]
  - MALAISE [None]
  - MOOD SWINGS [None]
  - DRUG INTOLERANCE [None]
  - MALABSORPTION [None]
  - HYPERHIDROSIS [None]
  - FEELING OF BODY TEMPERATURE CHANGE [None]
  - MIDDLE INSOMNIA [None]
  - IMPAIRED GASTRIC EMPTYING [None]
